FAERS Safety Report 21301143 (Version 1)
Quarter: 2022Q3

REPORT INFORMATION
  Report Type: Spontaneous
  Country: US (occurrence: US)
  Receive Date: 20220907
  Receipt Date: 20220907
  Transmission Date: 20221027
  Serious: Yes (Death, Hospitalization)
  Sender: FDA-Public Use
  Company Number: US-AMGEN-USASP2022150248

PATIENT
  Age: 62 Year
  Sex: Female

DRUGS (3)
  1. CINACALCET HYDROCHLORIDE [Suspect]
     Active Substance: CINACALCET HYDROCHLORIDE
     Indication: Hyperparathyroidism secondary
     Route: 065
  2. SEVELAMER [Concomitant]
     Active Substance: SEVELAMER
  3. HECTOROL [Concomitant]
     Active Substance: DOXERCALCIFEROL

REACTIONS (4)
  - Cardiac arrest [Fatal]
  - Calciphylaxis [Fatal]
  - Dialysis hypotension [Unknown]
  - Hypocalcaemia [Unknown]
